FAERS Safety Report 10470965 (Version 2)
Quarter: 2014Q4

REPORT INFORMATION
  Report Type: Spontaneous
  Country: US (occurrence: None)
  Receive Date: 20140917
  Receipt Date: 20141217
  Transmission Date: 20150528
  Serious: No
  Sender: FDA-Public Use
  Company Number: 2014CT000102

PATIENT
  Age: 46 Year
  Sex: Female
  Weight: 80.74 kg

DRUGS (4)
  1. KORLYM [Suspect]
     Active Substance: MIFEPRISTONE
     Indication: CUSHING^S SYNDROME
     Route: 048
     Dates: start: 20140708
  2. KORLYM [Suspect]
     Active Substance: MIFEPRISTONE
     Indication: HYPERCORTICOIDISM
     Route: 048
     Dates: start: 20140708
  3. UROCIT-K [Concomitant]
     Active Substance: POTASSIUM CITRATE
  4. ZOR/00595201/ [Concomitant]

REACTIONS (12)
  - Tremor [None]
  - Dyspepsia [None]
  - Nausea [None]
  - Weight decreased [None]
  - Asthma [None]
  - Hyperaesthesia [None]
  - Arthralgia [None]
  - Fatigue [None]
  - Vomiting [None]
  - Constipation [None]
  - Pain in extremity [None]
  - Myalgia [None]

NARRATIVE: CASE EVENT DATE: 201407
